FAERS Safety Report 6812096-8 (Version None)
Quarter: 2010Q3

REPORT INFORMATION
  Report Type: 
  Country: None (occurrence: None)
  Receive Date: 20100701
  Receipt Date: 20100615
  Transmission Date: 20110219
  Serious: Yes (Hospitalization)
  Sender: FDA-Public Use
  Company Number: GB-JNJFOC-20100607827

PATIENT
  Age: 79 Year
  Sex: Male

DRUGS (20)
  1. TRAMADOL HYDROCHLORIDE [Suspect]
     Indication: ANALGESIC THERAPY
     Route: 048
  2. ALFACALCIDOL [Concomitant]
  3. AMLODIPINE [Concomitant]
  4. ASPIRIN [Concomitant]
  5. ATENOLOL [Concomitant]
  6. BENDROFLUMETHIAZIDE [Concomitant]
  7. CODEINE SULFATE [Concomitant]
  8. COTRIM [Concomitant]
  9. DOCUSATE SODIUM [Concomitant]
  10. DOXYCYCLINE [Concomitant]
  11. FUROSEMIDE [Concomitant]
  12. GAVISCON [Concomitant]
  13. HYDRALAZINE HCL [Concomitant]
  14. LACTULOSE [Concomitant]
  15. METOCLOPRAMIDE [Concomitant]
  16. OMEPRAZOLE [Concomitant]
  17. ACETAMINOPHEN [Concomitant]
  18. SENNA [Concomitant]
  19. SIMVASTATIN [Concomitant]
  20. TINZAPARIN [Concomitant]

REACTIONS (1)
  - LIVER FUNCTION TEST ABNORMAL [None]
